FAERS Safety Report 9468183 (Version 1)
Quarter: 2013Q3

REPORT INFORMATION
  Report Type: Spontaneous
  Country: US (occurrence: None)
  Receive Date: 20130816
  Receipt Date: 20130816
  Transmission Date: 20140515
  Serious: Yes (Death)
  Sender: FDA-Public Use
  Company Number: 2013-343

PATIENT
  Age: 43 Year
  Sex: Male

DRUGS (1)
  1. FAZACLO [Suspect]
     Indication: SCHIZOPHRENIA
     Route: 048
     Dates: start: 20080821

REACTIONS (1)
  - Lung cancer metastatic [None]
